FAERS Safety Report 5469874-X (Version None)
Quarter: 2007Q3

REPORT INFORMATION
  Report Type: 
  Country: None (occurrence: None)
  Receive Date: 20070927
  Receipt Date: 20070914
  Transmission Date: 20080115
  Serious: Yes (Hospitalization)
  Sender: FDA-Public Use
  Company Number: JP-ELI_LILLY_AND_COMPANY-JP200703004751

PATIENT
  Age: 78 Year
  Sex: Female
  Weight: 40.8 kg

DRUGS (8)
  1. RALOXIFENE HYDROCHLORIDE [Suspect]
     Indication: OSTEOPOROSIS POSTMENOPAUSAL
     Dosage: 60 MG, DAILY (1/D)
     Route: 048
     Dates: start: 20050114
  2. ALFAROL [Concomitant]
     Indication: OSTEOPOROSIS
     Dosage: 1 UG, DAILY (1/D)
     Route: 048
     Dates: start: 20050114
  3. ASPARA-CA [Concomitant]
     Indication: OSTEOPOROSIS
     Dosage: 800 MEQ, DAILY (1/D)
     Route: 048
     Dates: start: 20050114
  4. CALCITONIN-SALMON [Concomitant]
     Indication: OSTEOPOROSIS
     Dosage: 10 U, 2/W
     Route: 030
     Dates: start: 20050114, end: 20050511
  5. CALCITONIN-SALMON [Concomitant]
     Dosage: 10 U, WEEKLY (1/W)
     Route: 030
     Dates: start: 20050527
  6. SOLETON [Concomitant]
     Indication: SPONDYLOLISTHESIS
     Dosage: 240 MG, DAILY (1/D)
     Route: 048
     Dates: start: 20050427, end: 20050527
  7. MUCOSTA [Concomitant]
     Indication: PROPHYLAXIS AGAINST GASTROINTESTINAL ULCER
     Dosage: 300 MG, DAILY (1/D)
     Route: 048
     Dates: start: 20050430, end: 20050527
  8. ADOFEED [Concomitant]
     Indication: OEDEMA PERIPHERAL
     Dosage: UNK, UNKNOWN
     Route: 062
     Dates: start: 20060728, end: 20060728

REACTIONS (1)
  - CATARACT [None]
